FAERS Safety Report 9309913 (Version 1)
Quarter: 2013Q2

REPORT INFORMATION
  Report Type: Spontaneous
  Country: BR (occurrence: BR)
  Receive Date: 20130526
  Receipt Date: 20130526
  Transmission Date: 20140414
  Serious: Yes (Other)
  Sender: FDA-Public Use
  Company Number: BR-ABBOTT-13X-020-1085117-00

PATIENT
  Age: 14 Year
  Sex: Male
  Weight: 82 kg

DRUGS (6)
  1. DEPAKENE [Suspect]
     Indication: CONVULSION
     Dates: start: 1998, end: 2003
  2. TOPAMAX [Concomitant]
     Indication: CONVULSION
     Dosage: 1 TABLET DISSOLVED IN 1 ML OF WATER, OFFERED IN A SYRINGE VIA ORAL
     Route: 048
  3. RIVOTRIL [Concomitant]
     Indication: CONVULSION
     Route: 048
  4. GARDENAL [Concomitant]
     Indication: CONVULSION
     Route: 048
  5. TEGRETOL [Concomitant]
     Indication: CONVULSION
     Route: 048
  6. TRILEPTAL [Concomitant]
     Indication: PRODUCT USED FOR UNKNOWN INDICATION

REACTIONS (6)
  - Convulsion [Recovered/Resolved]
  - Convulsion [Recovered/Resolved]
  - Anaemia [Recovered/Resolved]
  - Hypersomnia [Recovered/Resolved]
  - Weight increased [Unknown]
  - Cachexia [Unknown]
